FAERS Safety Report 8103089-1 (Version None)
Quarter: 2012Q1

REPORT INFORMATION
  Report Type: 
  Country: None (occurrence: None)
  Receive Date: 20120201
  Receipt Date: 20120126
  Transmission Date: 20120608
  Serious: Yes (Other)
  Sender: FDA-Public Use
  Company Number: US-JNJFOC-20120112352

PATIENT
  Sex: Female
  Weight: 61.24 kg

DRUGS (4)
  1. LEVAQUIN [Suspect]
     Indication: PNEUMONIA
     Route: 065
     Dates: start: 20090309, end: 20090301
  2. BACTRIM [Suspect]
     Indication: PNEUMONIA
     Route: 065
     Dates: start: 20090301, end: 20090301
  3. LEVAQUIN [Suspect]
     Indication: CROUP INFECTIOUS
     Route: 065
     Dates: start: 20090309, end: 20090301
  4. LEVAQUIN [Suspect]
     Indication: TRAUMATIC LUNG INJURY
     Route: 065
     Dates: start: 20090309, end: 20090301

REACTIONS (3)
  - PNEUMONIA [None]
  - MATERNAL EXPOSURE DURING PREGNANCY [None]
  - ABORTION SPONTANEOUS [None]
